FAERS Safety Report 13398117 (Version 6)
Quarter: 2020Q3

REPORT INFORMATION
  Report Type: Report from Study
  Country: TR (occurrence: TR)
  Receive Date: 20170403
  Receipt Date: 20200506
  Transmission Date: 20201105
  Serious: Yes (Other)
  Sender: FDA-Public Use
  Company Number: PHHO2017TR005639

PATIENT
  Age: 46 Year
  Sex: Male
  Weight: 107.2 kg

DRUGS (2)
  1. OCTREOTIDE. [Concomitant]
     Active Substance: OCTREOTIDE
     Indication: ACROMEGALY
     Dosage: UNK
     Route: 030
     Dates: start: 201007, end: 201609
  2. PASIREOTIDE. [Suspect]
     Active Substance: PASIREOTIDE
     Indication: ACROMEGALY
     Dosage: 20 MG
     Route: 030
     Dates: start: 20160720

REACTIONS (2)
  - Cholelithiasis [Recovering/Resolving]
  - Biliary dilatation [Recovering/Resolving]

NARRATIVE: CASE EVENT DATE: 20170105
